FAERS Safety Report 4817695-0 (Version None)
Quarter: 2005Q3

REPORT INFORMATION
  Report Type: 
  Country: None (occurrence: None)
  Receive Date: 20050929
  Receipt Date: 20050602
  Transmission Date: 20060218
  Serious: No
  Sender: FDA-Public Use
  Company Number: 05P-163-0302241-00

PATIENT
  Age: 50 Year
  Sex: Female
  Weight: 51.2565 kg

DRUGS (7)
  1. HUMIRA [Suspect]
     Indication: CROHN'S DISEASE
     Dosage: 80 MG, 1 IN 2 WK, SUBCUTANEOUS
     Route: 058
     Dates: start: 20050407
  2. RISEDRONATE SODIUM [Concomitant]
  3. PROGESTERONE [Concomitant]
  4. FURICET [Concomitant]
  5. SUMATRIPTAN SUCCINATE [Concomitant]
  6. VICODIN [Concomitant]
  7. TEMAZEPAM [Concomitant]

REACTIONS (4)
  - INJECTION SITE ERYTHEMA [None]
  - INJECTION SITE IRRITATION [None]
  - INJECTION SITE NODULE [None]
  - NAUSEA [None]
